FAERS Safety Report 18120283 (Version 3)
Quarter: 2021Q2

REPORT INFORMATION
  Report Type: Report from Study
  Country: US (occurrence: US)
  Receive Date: 20200806
  Receipt Date: 20210624
  Transmission Date: 20210717
  Serious: Yes (Hospitalization, Other)
  Sender: FDA-Public Use
  Company Number: US-SHIRE-US202025469

PATIENT
  Sex: Female
  Weight: 67 kg

DRUGS (8)
  1. CLONAZEPAM. [Concomitant]
     Active Substance: CLONAZEPAM
     Route: 065
  2. ACETAMINOPHEN. [Concomitant]
     Active Substance: ACETAMINOPHEN
     Route: 065
  3. EPINEPHRINE. [Concomitant]
     Active Substance: EPINEPHRINE
     Route: 065
  4. LAMICTAL [Concomitant]
     Active Substance: LAMOTRIGINE
     Route: 065
  5. CUVITRU [Suspect]
     Active Substance: HUMAN IMMUNOGLOBULIN G
     Indication: IMMUNODEFICIENCY COMMON VARIABLE
     Dosage: 10 GRAM, 1X/WEEK
     Route: 058
     Dates: start: 20180721
  6. LEXAPRO [Concomitant]
     Active Substance: ESCITALOPRAM OXALATE
     Route: 065
  7. SUMATRIPTAN. [Concomitant]
     Active Substance: SUMATRIPTAN
     Route: 065
  8. DIPHENHYDRAMINE. [Concomitant]
     Active Substance: DIPHENHYDRAMINE
     Route: 065

REACTIONS (2)
  - Sleep disorder [Unknown]
  - Gastrointestinal motility disorder [Unknown]
